FAERS Safety Report 13404527 (Version 1)
Quarter: 2017Q2

REPORT INFORMATION
  Report Type: Spontaneous
  Country: US (occurrence: US)
  Receive Date: 20170405
  Receipt Date: 20170405
  Transmission Date: 20170830
  Serious: No
  Sender: FDA-Public Use
  Company Number: None

PATIENT
  Age: 27 Year
  Sex: Male
  Weight: 81 kg

DRUGS (4)
  1. LIDOCAINE PATCH 5% [Suspect]
     Active Substance: LIDOCAINE
     Indication: BACK PAIN
     Dosage: ?          QUANTITY:30 PATCH(ES);?
     Route: 061
     Dates: start: 20170405, end: 20170405
  2. NAPROXEN. [Concomitant]
     Active Substance: NAPROXEN
  3. ROXICET [Concomitant]
     Active Substance: ACETAMINOPHEN\OXYCODONE HYDROCHLORIDE
  4. GABAPENTIN. [Concomitant]
     Active Substance: GABAPENTIN

REACTIONS (2)
  - Drug ineffective [None]
  - Product adhesion issue [None]

NARRATIVE: CASE EVENT DATE: 20170405
